FAERS Safety Report 15707907 (Version 1)
Quarter: 2018Q4

REPORT INFORMATION
  Report Type: Spontaneous
  Country: PL (occurrence: PL)
  Receive Date: 20181211
  Receipt Date: 20181211
  Transmission Date: 20190205
  Serious: Yes (Hospitalization)
  Sender: FDA-Public Use
  Company Number: PL-SUN PHARMACEUTICAL INDUSTRIES LTD-2018RR-193038

PATIENT
  Age: 61 Year
  Sex: Male

DRUGS (1)
  1. KLABAX [Suspect]
     Active Substance: CLARITHROMYCIN
     Indication: SINUSITIS BACTERIAL
     Dosage: 500 MILLIGRAM, BID
     Route: 048
     Dates: start: 20181126, end: 20181127

REACTIONS (3)
  - Vertigo [Unknown]
  - Speech disorder [Unknown]
  - Asthenia [Unknown]
